FAERS Safety Report 8813282 (Version 1)
Quarter: 2012Q4

REPORT INFORMATION
  Report Type: 
  Country: US (occurrence: US)
  Receive Date: 20120927
  Receipt Date: 20120927
  Transmission Date: 20130627
  Serious: No
  Sender: FDA-Public Use
  Company Number: US-AMGEN-USASP2012046910

PATIENT
  Sex: Female
  Weight: 40.4 kg

DRUGS (7)
  1. PROLIA [Suspect]
     Indication: OSTEOPOROSIS POSTMENOPAUSAL
     Dosage: 60 mg, q6mo
  2. VALIUM                             /00017001/ [Concomitant]
  3. CRESTOR [Concomitant]
  4. VITAMIN D /00107901/ [Concomitant]
  5. CENTRUM SILVER                     /01292501/ [Concomitant]
  6. STOOL SOFTENER [Concomitant]
  7. TRAMADOL [Concomitant]

REACTIONS (7)
  - Nail disorder [Not Recovered/Not Resolved]
  - Onychoclasis [Not Recovered/Not Resolved]
  - Arthralgia [Not Recovered/Not Resolved]
  - Back pain [Not Recovered/Not Resolved]
  - Weight decreased [Not Recovered/Not Resolved]
  - Constipation [Not Recovered/Not Resolved]
  - Mobility decreased [Not Recovered/Not Resolved]
